FAERS Safety Report 21633491 (Version 1)
Quarter: 2022Q4

REPORT INFORMATION
  Report Type: Spontaneous
  Country: GB (occurrence: GB)
  Receive Date: 20221123
  Receipt Date: 20221123
  Transmission Date: 20230113
  Serious: Yes (Other)
  Sender: FDA-Public Use
  Company Number: GB-MHRA-MED-202211172225236780-NVDTW

PATIENT
  Age: 50 Year
  Sex: Female
  Weight: 70 kg

DRUGS (1)
  1. DOXYCYCLINE [Suspect]
     Active Substance: DOXYCYCLINE
     Indication: Ear infection
     Dosage: 200 MILLIGRAM
     Route: 065

REACTIONS (4)
  - Insomnia [Recovered/Resolved]
  - Pharyngeal swelling [Recovered/Resolved]
  - Confusional state [Recovered/Resolved]
  - Swollen tongue [Recovered/Resolved]
